FAERS Safety Report 6169234-2 (Version None)
Quarter: 2009Q2

REPORT INFORMATION
  Report Type: 
  Country: None (occurrence: None)
  Receive Date: 20090424
  Receipt Date: 20090421
  Transmission Date: 20091009
  Serious: Yes (Other)
  Sender: FDA-Public Use
  Company Number: 192294USA

PATIENT
  Age: 45 Year
  Sex: Female

DRUGS (4)
  1. METHOTREXATE [Suspect]
     Dosage: 20 MG (1 IN 1 WK), ORAL; 15 MG (1 IN 1 WK), ORAL
     Route: 048
     Dates: start: 20030305
  2. METHOTREXATE [Suspect]
     Dosage: 20 MG (1 IN 1 WK), ORAL; 15 MG (1 IN 1 WK), ORAL
     Route: 048
     Dates: start: 20050607
  3. ETANERCEPT [Suspect]
     Indication: RHEUMATOID ARTHRITIS
     Dosage: 25 MG (2 IN 1 ), SUBCUTANEOUS; 50 MG (1 IN 1 WK), SUBCUTANEOUS
     Route: 058
     Dates: start: 20030305, end: 20030801
  4. ETANERCEPT [Suspect]
     Indication: RHEUMATOID ARTHRITIS
     Dosage: 25 MG (2 IN 1 ), SUBCUTANEOUS; 50 MG (1 IN 1 WK), SUBCUTANEOUS
     Route: 058
     Dates: start: 20050607, end: 20060501

REACTIONS (1)
  - TUBERCULIN TEST POSITIVE [None]
